FAERS Safety Report 10615172 (Version 2)
Quarter: 2014Q4

REPORT INFORMATION
  Report Type: Spontaneous
  Country: FR (occurrence: None)
  Receive Date: 20141124
  Receipt Date: 20141204
  Transmission Date: 20150529
  Serious: Yes (Hospitalization, Other)
  Sender: FDA-Public Use
  Company Number: ADR-2014-02217

PATIENT
  Age: 38 Year
  Sex: Male

DRUGS (1)
  1. BACLOFEN (ORAL) [Suspect]
     Active Substance: BACLOFEN
     Indication: ALCOHOLISM
     Route: 048
     Dates: start: 20131112

REACTIONS (7)
  - Agitation [None]
  - Loss of consciousness [None]
  - Haematoma [None]
  - Delirium [None]
  - Incorrect dose administered [None]
  - Refusal of treatment by patient [None]
  - Treatment noncompliance [None]

NARRATIVE: CASE EVENT DATE: 20141010
